FAERS Safety Report 8926289 (Version 2)
Quarter: 2014Q2

REPORT INFORMATION
  Report Type: Report from Study
  Country: US (occurrence: US)
  Receive Date: 20121126
  Receipt Date: 20140422
  Transmission Date: 20141212
  Serious: Yes (Hospitalization, Other)
  Sender: FDA-Public Use
  Company Number: PHEH2012US019450

PATIENT
  Age: 45 Year
  Sex: Female
  Weight: 111.11 kg

DRUGS (1)
  1. GILENYA [Suspect]
     Indication: MULTIPLE SCLEROSIS
     Dosage: 1 DF, QD
     Route: 048
     Dates: start: 20110901

REACTIONS (4)
  - Multiple sclerosis relapse [Recovered/Resolved]
  - Central nervous system lesion [Recovered/Resolved]
  - Hypoaesthesia [Recovered/Resolved]
  - Patella fracture [Unknown]
